FAERS Safety Report 10531941 (Version 1)
Quarter: 2014Q4

REPORT INFORMATION
  Report Type: Spontaneous
  Country: US (occurrence: US)
  Receive Date: 20141021
  Receipt Date: 20141021
  Transmission Date: 20150529
  Serious: No
  Sender: FDA-Public Use
  Company Number: US-BAUSCH-BL-2014-003785

PATIENT
  Age: 90 Year
  Sex: Female

DRUGS (3)
  1. LOTEMAX [Suspect]
     Active Substance: LOTEPREDNOL ETABONATE
     Indication: PRODUCT USED FOR UNKNOWN INDICATION
     Dosage: IN THE RIGHT EYE AT BEDTIME
     Route: 047
     Dates: start: 201407
  2. LOTEMAX [Suspect]
     Active Substance: LOTEPREDNOL ETABONATE
     Indication: PRODUCT USED FOR UNKNOWN INDICATION
     Dosage: IN THE RIGHT EYE IN THE MORNING
     Route: 047
  3. REFRESH [Concomitant]
     Active Substance: UNSPECIFIED INGREDIENT
     Indication: PRODUCT USED FOR UNKNOWN INDICATION

REACTIONS (1)
  - Eye irritation [Not Recovered/Not Resolved]

NARRATIVE: CASE EVENT DATE: 201407
